FAERS Safety Report 18719337 (Version 1)
Quarter: 2021Q1

REPORT INFORMATION
  Report Type: Spontaneous
  Country: US (occurrence: US)
  Receive Date: 20210108
  Receipt Date: 20210108
  Transmission Date: 20210419
  Serious: No
  Sender: FDA-Public Use
  Company Number: US-009507513-2101USA004001

PATIENT
  Age: 72 Year
  Sex: Male

DRUGS (6)
  1. SIVEXTRO [Suspect]
     Active Substance: TEDIZOLID PHOSPHATE
     Indication: MYCOBACTERIUM ABSCESSUS INFECTION
     Dosage: UNK
     Route: 048
  2. CLOFAZIMINE [Concomitant]
     Active Substance: CLOFAZIMINE
     Indication: MYCOBACTERIUM ABSCESSUS INFECTION
  3. OMADACYCLINE. [Concomitant]
     Active Substance: OMADACYCLINE
     Dosage: 300 MILLIGRAM, QD
     Route: 048
  4. AMIKACIN. [Concomitant]
     Active Substance: AMIKACIN
     Indication: MYCOBACTERIUM ABSCESSUS INFECTION
     Dosage: UNK
  5. IMIPENEM [Concomitant]
     Active Substance: IMIPENEM
     Indication: MYCOBACTERIUM ABSCESSUS INFECTION
  6. OMADACYCLINE. [Concomitant]
     Active Substance: OMADACYCLINE
     Indication: MYCOBACTERIUM ABSCESSUS INFECTION
     Dosage: 450 MILLIGRAM, QD FOR 2 DAYS

REACTIONS (3)
  - Fatigue [Not Recovered/Not Resolved]
  - Dizziness [Unknown]
  - Off label use [Unknown]
